FAERS Safety Report 25285326 (Version 1)
Quarter: 2025Q2

REPORT INFORMATION
  Report Type: Spontaneous
  Country: US (occurrence: US)
  Receive Date: 20250509
  Receipt Date: 20250509
  Transmission Date: 20250717
  Serious: No
  Sender: COLLEGIUM PHARMACEUTICAL
  Company Number: US-COLLEGIUM PHARMACEUTICAL, INC.-20240500340

PATIENT

DRUGS (1)
  1. XTAMPZA ER [Suspect]
     Active Substance: OXYCODONE
     Indication: Procedural pain
     Route: 065

REACTIONS (4)
  - Drug ineffective [Unknown]
  - Adverse event [Unknown]
  - Product physical consistency issue [Unknown]
  - Product physical issue [Unknown]
